FAERS Safety Report 9462395 (Version 1)
Quarter: 2013Q3

REPORT INFORMATION
  Report Type: Spontaneous
  Country: US (occurrence: None)
  Receive Date: 20130815
  Receipt Date: 20130815
  Transmission Date: 20140515
  Serious: Yes (Hospitalization)
  Sender: FDA-Public Use
  Company Number: None

PATIENT
  Age: 66 Year
  Sex: Female
  Weight: 63.4 kg

DRUGS (1)
  1. RECLAST [Suspect]
     Indication: SENILE OSTEOPOROSIS
     Route: 042
     Dates: start: 20130806

REACTIONS (4)
  - Hepatitis acute [None]
  - Pyrexia [None]
  - Fatigue [None]
  - Dizziness [None]
